FAERS Safety Report 14727221 (Version 3)
Quarter: 2022Q2

REPORT INFORMATION
  Report Type: Spontaneous
  Country: GR (occurrence: GR)
  Receive Date: 20180406
  Receipt Date: 20220509
  Transmission Date: 20220721
  Serious: Yes (Life-Threatening, Hospitalization, Other)
  Sender: FDA-Public Use
  Company Number: GR-MYLANLABS-2018M1020556

PATIENT
  Age: 80 Year
  Sex: Female

DRUGS (1)
  1. ACETAZOLAMIDE [Suspect]
     Active Substance: ACETAZOLAMIDE
     Indication: Intraocular pressure test
     Dosage: HALF A TABLET WAS GIVEN

REACTIONS (2)
  - Anaphylactic shock [Unknown]
  - Acute pulmonary oedema [Recovered/Resolved]
